FAERS Safety Report 18813419 (Version 1)
Quarter: 2021Q1

REPORT INFORMATION
  Report Type: Spontaneous
  Country: CA (occurrence: CA)
  Receive Date: 20210201
  Receipt Date: 20210201
  Transmission Date: 20210419
  Serious: Yes (Other)
  Sender: FDA-Public Use
  Company Number: CA-JNJFOC-20210143759

PATIENT
  Age: 64 Year
  Sex: Male

DRUGS (4)
  1. AZATHIOPRINE. [Concomitant]
     Active Substance: AZATHIOPRINE
     Route: 065
  2. AZATHIOPRINE. [Concomitant]
     Active Substance: AZATHIOPRINE
     Route: 065
  3. INFLIXIMAB, RECOMBINANT [Suspect]
     Active Substance: INFLIXIMAB
     Indication: COLITIS ULCERATIVE
     Route: 042
  4. ASACOL [Concomitant]
     Active Substance: MESALAMINE
     Dosage: ENTERIC COATED
     Route: 065

REACTIONS (7)
  - Off label use [Unknown]
  - Heart rate decreased [Unknown]
  - Product use issue [Unknown]
  - Condition aggravated [Unknown]
  - Intentional product use issue [Unknown]
  - Drug specific antibody present [Unknown]
  - Therapy non-responder [Unknown]
